FAERS Safety Report 25076744 (Version 1)
Quarter: 2025Q1

REPORT INFORMATION
  Report Type: Spontaneous
  Country: US (occurrence: US)
  Receive Date: 20250313
  Receipt Date: 20250313
  Transmission Date: 20250409
  Serious: Yes (Life-Threatening)
  Sender: PRINSTON PHARMACEUTICAL
  Company Number: US-PRINSTON PHARMACEUTICAL INC.-2025PRN00071

PATIENT
  Age: 38 Year
  Sex: Male

DRUGS (2)
  1. METOPROLOL SUCCINATE [Suspect]
     Active Substance: METOPROLOL SUCCINATE
     Route: 042
  2. ESMOLOL [Suspect]
     Active Substance: ESMOLOL HYDROCHLORIDE
     Route: 042

REACTIONS (1)
  - Hyperkalaemia [Recovering/Resolving]
